FAERS Safety Report 8941887 (Version 1)
Quarter: 2012Q4

REPORT INFORMATION
  Report Type: 
  Country: JP (occurrence: JP)
  Receive Date: 20121203
  Receipt Date: 20121203
  Transmission Date: 20130627
  Serious: Yes (Other)
  Sender: FDA-Public Use
  Company Number: JP-ASTRAZENECA-2012SE48490

PATIENT
  Age: 28087 Day
  Sex: Male
  Weight: 60 kg

DRUGS (12)
  1. ANAPEINE [Suspect]
     Indication: NERVE BLOCK
     Route: 053
     Dates: start: 20120706, end: 20120706
  2. PROPOFOL [Concomitant]
     Indication: INDUCTION OF ANAESTHESIA
     Route: 042
     Dates: start: 20120706, end: 20120706
  3. DESFLURANE [Concomitant]
     Indication: INDUCTION OF ANAESTHESIA
     Dosage: 2 - 3%
     Route: 042
     Dates: start: 20120706, end: 20120706
  4. ESLAX [Concomitant]
     Indication: INDUCTION OF ANAESTHESIA
     Route: 042
     Dates: start: 20120706, end: 20120706
  5. SEISHOKU [Concomitant]
     Route: 053
  6. ULTIVA [Concomitant]
     Indication: ANAESTHESIA PROCEDURE
     Route: 042
     Dates: start: 20120706, end: 20120706
  7. NEO-SYNESIN [Concomitant]
     Indication: ANAESTHESIA PROCEDURE
     Route: 042
     Dates: start: 20120706, end: 20120706
  8. CEFMETAZOLE SODIUM [Concomitant]
     Indication: ANAESTHESIA PROCEDURE
     Route: 042
     Dates: start: 20120706, end: 20120706
  9. LASIX [Concomitant]
     Indication: ANAESTHESIA PROCEDURE
     Route: 042
     Dates: start: 20120706, end: 20120706
  10. FENTANYL [Concomitant]
     Indication: ANAESTHESIA PROCEDURE
     Route: 041
     Dates: start: 20120706, end: 20120706
  11. PROSTANDIN 500 [Concomitant]
     Indication: ANAESTHESIA PROCEDURE
     Route: 042
     Dates: start: 20120706, end: 20120706
  12. BRIDION [Concomitant]
     Indication: ANAESTHESIA PROCEDURE
     Route: 042
     Dates: start: 20120706, end: 20120706

REACTIONS (2)
  - Toxicity to various agents [Recovered/Resolved]
  - Tremor [Recovered/Resolved]
